APPROVED DRUG PRODUCT: AK-FLUOR 10%
Active Ingredient: FLUORESCEIN SODIUM
Strength: EQ 500MG BASE/5ML (EQ 100MG BASE/ML)
Dosage Form/Route: INJECTABLE;INTRAVENOUS
Application: N022186 | Product #001 | TE Code: AP
Applicant: LONG GROVE PHARMACEUTICALS LLC
Approved: Aug 8, 2008 | RLD: Yes | RS: Yes | Type: RX